FAERS Safety Report 10126317 (Version 2)
Quarter: 2014Q2

REPORT INFORMATION
  Report Type: Spontaneous
  Country: GB (occurrence: GB)
  Receive Date: 20140427
  Receipt Date: 20140611
  Transmission Date: 20141212
  Serious: Yes (Life-Threatening)
  Sender: FDA-Public Use
  Company Number: GB-BRISTOL-MYERS SQUIBB COMPANY-20650834

PATIENT
  Age: 61 Year
  Sex: Female
  Weight: 138 kg

DRUGS (13)
  1. FORXIGA [Suspect]
     Indication: DIABETES MELLITUS
     Route: 048
     Dates: start: 201308
  2. LERCANIDIPINE [Concomitant]
  3. METFORMIN [Concomitant]
  4. NOVORAPID [Concomitant]
  5. ENALAPRIL [Concomitant]
  6. DOXAZOSIN [Concomitant]
  7. ALLOPURINOL [Concomitant]
  8. CLOPIDOGREL BISULFATE [Concomitant]
  9. THYROXINE [Concomitant]
  10. OMEPRAZOLE [Concomitant]
  11. VITAMIN D [Concomitant]
  12. COLCHICINE [Concomitant]
  13. INSULIN [Concomitant]

REACTIONS (1)
  - Breast cancer [Unknown]
